FAERS Safety Report 8916281 (Version 1)
Quarter: 2012Q4

REPORT INFORMATION
  Report Type: 
  Country: US (occurrence: US)
  Receive Date: 20121120
  Receipt Date: 20121120
  Transmission Date: 20130627
  Serious: Yes (Other)
  Sender: FDA-Public Use
  Company Number: US-TEVA-370975USA

PATIENT
  Age: 52 Year
  Sex: Female

DRUGS (1)
  1. COPAXONE [Suspect]
     Indication: MULTIPLE SCLEROSIS

REACTIONS (11)
  - Lipoatrophy [Unknown]
  - Heart rate irregular [Unknown]
  - Dyspnoea [Unknown]
  - Back pain [Unknown]
  - Hot flush [Unknown]
  - Feeling hot [Unknown]
  - Neck pain [Unknown]
  - Muscle spasms [Unknown]
  - Trismus [Unknown]
  - Feeling cold [Unknown]
  - Cold sweat [Unknown]
